FAERS Safety Report 4714681-6 (Version None)
Quarter: 2005Q3

REPORT INFORMATION
  Report Type: 
  Country: None (occurrence: None)
  Receive Date: 20050712
  Receipt Date: 20050629
  Transmission Date: 20060218
  Serious: Yes (Other)
  Sender: FDA-Public Use
  Company Number: 215794

PATIENT
  Age: 60 Year
  Sex: Female

DRUGS (2)
  1. RITUXIMAB (RITUXIMAB) CONC FOR SOLUTION FOR INFUSION [Suspect]
     Indication: NON-HODGKIN'S LYMPHOMA
     Dosage: 375 MG/M2, 1/WEEK, INTRAVENOUS
     Route: 042
     Dates: start: 20040901, end: 20041001
  2. PLAQUENIL [Concomitant]

REACTIONS (6)
  - COW'S MILK INTOLERANCE [None]
  - INCREASED UPPER AIRWAY SECRETION [None]
  - MALNUTRITION [None]
  - PRURITUS [None]
  - RASH [None]
  - WEIGHT DECREASED [None]
